FAERS Safety Report 8889663 (Version 1)
Quarter: 2012Q4

REPORT INFORMATION
  Report Type: Spontaneous
  Country: US (occurrence: None)
  Receive Date: 20121105
  Receipt Date: 20121105
  Transmission Date: 20130627
  Serious: Yes (Disabling)
  Sender: FDA-Public Use
  Company Number: None

PATIENT
  Age: 28 Year
  Sex: Female
  Weight: 54.43 kg

DRUGS (1)
  1. KENALOG [Suspect]
     Indication: MULTIPLE ALLERGIES
     Dosage: once IM
     Route: 030
     Dates: start: 20120813, end: 20120813

REACTIONS (4)
  - Injection site reaction [None]
  - Wrong technique in drug usage process [None]
  - Menstruation irregular [None]
  - Musculoskeletal deformity [None]
